FAERS Safety Report 4348191-5 (Version None)
Quarter: 2004Q2

REPORT INFORMATION
  Report Type: 
  Country: None (occurrence: None)
  Receive Date: 20040422
  Receipt Date: 20040405
  Transmission Date: 20050107
  Serious: Yes (Other)
  Sender: FDA-Public Use
  Company Number: USA040464109

PATIENT
  Age: 57 Year
  Sex: Female

DRUGS (6)
  1. FORTEO [Suspect]
     Indication: OSTEOPOROSIS
     Dates: start: 20030801
  2. FLUOXETINE HCL [Concomitant]
  3. ALLEGRA [Concomitant]
  4. MULTIVITAMIN [Concomitant]
  5. GLUCOPHAGE [Concomitant]
  6. VIOXX [Concomitant]

REACTIONS (3)
  - FALL [None]
  - HYPOTRICHOSIS [None]
  - WRIST FRACTURE [None]
